FAERS Safety Report 8861592 (Version 1)
Quarter: 2012Q4

REPORT INFORMATION
  Report Type: 
  Country: US (occurrence: US)
  Receive Date: 20121025
  Receipt Date: 20121025
  Transmission Date: 20130627
  Serious: No
  Sender: FDA-Public Use
  Company Number: US-AMGEN-USASP2012017683

PATIENT
  Age: 48 Year
  Sex: Female
  Weight: 74.38 kg

DRUGS (11)
  1. ENBREL [Suspect]
     Indication: PRODUCT USED FOR UNKNOWN INDICATION
     Dosage: 50 mg, qwk
     Route: 058
  2. PREDNISONE [Concomitant]
     Dosage: 1 mg, UNK
  3. METHOTREXATE [Concomitant]
     Dosage: 2.5 mg, UNK
  4. LEUCOVORIN CA [Concomitant]
     Dosage: 25 mg, UNK
  5. CENTRUM                            /00554501/ [Concomitant]
     Dosage: UNK
  6. OSCAL [Concomitant]
     Dosage: UNK
  7. VITAMIN E                          /00110501/ [Concomitant]
     Dosage: UNK
  8. VITAMIN D3 [Concomitant]
     Dosage: UNK
  9. IRON [Concomitant]
     Dosage: 325 mg, UNK
  10. MUCINEX D [Concomitant]
     Dosage: UNK
  11. COLD                               /00014501/ [Concomitant]
     Dosage: 120 mg, UNK

REACTIONS (1)
  - Influenza [Unknown]
